FAERS Safety Report 8156488-6 (Version None)
Quarter: 2012Q1

REPORT INFORMATION
  Report Type: 
  Country: None (occurrence: None)
  Receive Date: 20120222
  Receipt Date: 20120215
  Transmission Date: 20120608
  Serious: Yes (Other)
  Sender: FDA-Public Use
  Company Number: US-BAYER-2012-016761

PATIENT
  Age: 28 Year
  Sex: Female

DRUGS (3)
  1. TYLENOL COLD [PARACETAMOL] [Concomitant]
  2. LOVENOX [Concomitant]
  3. YASMIN [Suspect]
     Indication: CONTRACEPTION

REACTIONS (4)
  - CHEST PAIN [None]
  - PAIN IN EXTREMITY [None]
  - PULMONARY EMBOLISM [None]
  - HEADACHE [None]
